FAERS Safety Report 5352483-0 (Version None)
Quarter: 2007Q2

REPORT INFORMATION
  Report Type: 
  Country: None (occurrence: None)
  Receive Date: 20070611
  Receipt Date: 20070607
  Transmission Date: 20071010
  Serious: Yes (Death)
  Sender: FDA-Public Use
  Company Number: B0474178A

PATIENT
  Age: 15 Year
  Sex: Male

DRUGS (7)
  1. MELPHALAN [Suspect]
     Indication: STEM CELL TRANSPLANT
     Dosage: 130MG CYCLIC
     Route: 042
  2. ETOPOSIDE [Suspect]
     Indication: STEM CELL TRANSPLANT
     Dosage: 500MG CYCLIC
     Route: 042
  3. CARBOPLATIN [Suspect]
     Indication: STEM CELL TRANSPLANT
     Dosage: 500MG CYCLIC
     Route: 042
  4. VINCRISTINE SULFATE [Concomitant]
     Indication: EWING'S SARCOMA
     Route: 042
  5. ACTINOMYCIN D [Concomitant]
     Indication: EWING'S SARCOMA
     Route: 042
  6. DOXORUBICIN HYDROCHLORIDE [Concomitant]
     Indication: EWING'S SARCOMA
     Route: 042
  7. IFOSFAMIDE [Concomitant]
     Indication: EWING'S SARCOMA
     Route: 042

REACTIONS (1)
  - ACUTE MYELOID LEUKAEMIA [None]
